FAERS Safety Report 15120855 (Version 2)
Quarter: 2018Q3

REPORT INFORMATION
  Report Type: Spontaneous
  Country: US (occurrence: US)
  Receive Date: 20180709
  Receipt Date: 20180726
  Transmission Date: 20181010
  Serious: No
  Sender: FDA-Public Use
  Company Number: US-SA-2018SA174776

PATIENT
  Age: 49 Year
  Sex: Female

DRUGS (1)
  1. TERIFLUNOMIDE [Suspect]
     Active Substance: TERIFLUNOMIDE
     Indication: MULTIPLE SCLEROSIS
     Dosage: 14 MG, QD
     Route: 048
     Dates: start: 201803

REACTIONS (6)
  - Hypoaesthesia [Unknown]
  - Heart rate increased [Unknown]
  - Tremor [Unknown]
  - Blood pressure increased [Not Recovered/Not Resolved]
  - Feeling cold [Unknown]
  - Feeling hot [Not Recovered/Not Resolved]
